FAERS Safety Report 9247296 (Version 1)
Quarter: 2013Q1

REPORT INFORMATION
  Report Type: Spontaneous
  Country: US (occurrence: None)
  Receive Date: 20130305
  Receipt Date: 20130305
  Transmission Date: 20140127
  Serious: Yes (Other)
  Sender: FDA-Public Use
  Company Number: 163-21880-12062260

PATIENT
  Age: 88 Year
  Sex: Female
  Weight: 55.34 kg

DRUGS (5)
  1. REVLIMID [Suspect]
     Indication: PLASMA CELL MYELOMA
     Dosage: 5 MG, QOD, PO
     Route: 048
     Dates: start: 201203
  2. XALATAN (LATANOPROST) (EYE DROPS) [Concomitant]
  3. SPIRIVIA (TIOTROPIUM BROMIDE) (UNKNOWN) [Concomitant]
  4. ATENOLOL (ATENOLOL) (UNKNOWN) [Concomitant]
  5. AMLODIPINE (AMLODIPINE) (UNKNOWN) [Concomitant]

REACTIONS (1)
  - Platelet count decreased [None]
